FAERS Safety Report 7800248-X (Version None)
Quarter: 2011Q4

REPORT INFORMATION
  Report Type: 
  Country: None (occurrence: None)
  Receive Date: 20111006
  Receipt Date: 20111003
  Transmission Date: 20120403
  Serious: Yes (Hospitalization, Disabling, Other)
  Sender: FDA-Public Use
  Company Number: US-GLAXOSMITHKLINE-A0946792A

PATIENT
  Sex: Male

DRUGS (10)
  1. HYDRALAZINE HCL [Concomitant]
  2. ZOCOR [Concomitant]
  3. ASCORBIC ACID [Concomitant]
  4. DIGOXIN [Concomitant]
  5. CALCITRIOL [Concomitant]
  6. PRADAXA [Concomitant]
  7. RYTHMOL SR [Suspect]
     Indication: ATRIAL FIBRILLATION
     Dosage: 225MG THREE TIMES PER DAY
     Route: 048
  8. DILTIAZEM HCL [Concomitant]
  9. PRINIVIL [Concomitant]
  10. M.V.I. [Concomitant]

REACTIONS (2)
  - BLINDNESS [None]
  - EYE HAEMORRHAGE [None]
